FAERS Safety Report 6200433-7 (Version None)
Quarter: 2009Q2

REPORT INFORMATION
  Report Type: 
  Country: None (occurrence: None)
  Receive Date: 20090522
  Receipt Date: 20090515
  Transmission Date: 20091009
  Serious: Yes (Hospitalization)
  Sender: FDA-Public Use
  Company Number: JP-GENENTECH-283236

PATIENT
  Age: 63 Year
  Sex: Male

DRUGS (8)
  1. RITUXIMAB [Suspect]
     Indication: MANTLE CELL LYMPHOMA
     Dosage: 375 MG/M2, UNK
     Route: 065
     Dates: start: 20060301
  2. CYCLOPHOSPHAMIDE [Concomitant]
     Indication: MANTLE CELL LYMPHOMA
     Dosage: 600 MG/M2, UNK
     Dates: start: 20060301
  3. VINCRISTINE SULFATE [Concomitant]
     Indication: MANTLE CELL LYMPHOMA
     Dosage: 1.4 MG/M2, UNK
     Dates: start: 20060301
  4. DOXORUBICIN HCL [Concomitant]
     Indication: MANTLE CELL LYMPHOMA
     Dosage: 50 MG/M2, UNK
     Dates: start: 20060301
  5. DEXAMETHASONE 4MG TAB [Concomitant]
     Indication: MANTLE CELL LYMPHOMA
     Dosage: 40 MG/M2, UNK
     Dates: start: 20060301
  6. METHOTREXATE [Concomitant]
     Indication: MANTLE CELL LYMPHOMA
     Dosage: 1000 MG/M2, UNK
     Dates: start: 20060301
  7. CYTARABINE [Concomitant]
     Indication: MANTLE CELL LYMPHOMA
     Dosage: 6000 MG/M2, UNK
     Dates: start: 20060301
  8. LEVOFLOXACIN [Concomitant]
     Indication: PROPHYLAXIS
     Dosage: 300 G, QD
     Dates: start: 20060501

REACTIONS (3)
  - LYMPHOCYTE COUNT DECREASED [None]
  - OSTEOMYELITIS [None]
  - OSTEONECROSIS [None]
